FAERS Safety Report 18058514 (Version 1)
Quarter: 2020Q3

REPORT INFORMATION
  Report Type: Spontaneous
  Country: US (occurrence: US)
  Receive Date: 20200722
  Receipt Date: 20200722
  Transmission Date: 20201103
  Serious: Yes (Other)
  Sender: FDA-Public Use
  Company Number: None

PATIENT
  Age: 39 Year
  Sex: Female
  Weight: 63 kg

DRUGS (5)
  1. LISINOPRIL. [Concomitant]
     Active Substance: LISINOPRIL
  2. BLUMEN CLEAR ADVANCED HAND SANITIZER [Suspect]
     Active Substance: ALCOHOL
     Indication: INFECTION PROPHYLAXIS
     Dosage: ?          OTHER STRENGTH:PERCENT;OTHER FREQUENCY:REPEATED USE;?
     Route: 061
     Dates: start: 20200325, end: 20200720
  3. VITAMIN C [Concomitant]
     Active Substance: ASCORBIC ACID
  4. ACETAMINOPHEN. [Concomitant]
     Active Substance: ACETAMINOPHEN
  5. IBUPROFEN. [Concomitant]
     Active Substance: IBUPROFEN

REACTIONS (5)
  - Blindness [None]
  - Headache [None]
  - Impaired work ability [None]
  - Recalled product administered [None]
  - Product quality issue [None]

NARRATIVE: CASE EVENT DATE: 20200701
